FAERS Safety Report 5049542-9 (Version None)
Quarter: 2006Q2

REPORT INFORMATION
  Report Type: 
  Country: None (occurrence: None)
  Receive Date: 20060613
  Receipt Date: 20060221
  Transmission Date: 20061013
  Serious: Yes (Hospitalization)
  Sender: FDA-Public Use
  Company Number: 2005-02243

PATIENT
  Age: 57 Year
  Sex: Female
  Weight: 53.1 kg

DRUGS (19)
  1. VELCADE [Suspect]
     Indication: MULTIPLE MYELOMA
     Dosage: 1.30 MG/M2, INTRAVENOUS
     Route: 042
     Dates: start: 20050628
  2. SCIO-469() [Suspect]
     Indication: MULTIPLE MYELOMA
     Dosage: 60.00MG
     Dates: start: 20050628
  3. LEVAQUIN [Concomitant]
  4. MULTIVITAMINS (ERGOCALCIFEROL, PANTHENOL, NICOTINAMIDE, RIBOFLAVIN, TH [Concomitant]
  5. LORAZEPAM [Concomitant]
  6. VICODIN [Concomitant]
  7. PROZAC [Concomitant]
  8. RISPERIDONE [Concomitant]
  9. CALTRATE (CALCIUM CARBONATE) [Concomitant]
  10. ASPIRIN TAB [Concomitant]
  11. PROPACET 100 [Concomitant]
  12. COMPAZINE [Concomitant]
  13. ZOFRAN [Concomitant]
  14. LAXATIVES [Concomitant]
  15. MYLANTA (MAGNESIUM HYDROXIDE, SIMETICONE, ALUMINUM HYDROXIDE GEL, DRIE [Concomitant]
  16. PSEUDOEPHEDRINE (PSEUDOEPHEDRINE) [Concomitant]
  17. GUAIFENESIN (GUAIFENESIN) [Concomitant]
  18. SUDAFED 12 HOUR [Concomitant]
  19. ACETAMINOPHEN [Concomitant]

REACTIONS (1)
  - LISTERIOSIS [None]
